FAERS Safety Report 5618114-7 (Version None)
Quarter: 2008Q1

REPORT INFORMATION
  Report Type: 
  Country: None (occurrence: None)
  Receive Date: 20080207
  Receipt Date: 20070927
  Transmission Date: 20080703
  Serious: No
  Sender: FDA-Public Use
  Company Number: A0684703A

PATIENT
  Sex: Male

DRUGS (4)
  1. PAXIL [Suspect]
     Dosage: 20MG PER DAY
     Route: 048
     Dates: start: 20070920, end: 20070924
  2. XANAX [Concomitant]
  3. PREVACID [Concomitant]
  4. ACIPHEX [Concomitant]

REACTIONS (2)
  - DIZZINESS [None]
  - PALLOR [None]
